FAERS Safety Report 16235940 (Version 1)
Quarter: 2019Q2

REPORT INFORMATION
  Report Type: Report from Study
  Country: None (occurrence: ES)
  Receive Date: 20190425
  Receipt Date: 20190425
  Transmission Date: 20190711
  Serious: Yes (Life-Threatening, Hospitalization, Other)
  Sender: FDA-Public Use
  Company Number: ES-ABBVIE-18P-144-2516834-00

PATIENT
  Age: 64 Year
  Sex: Male

DRUGS (12)
  1. AZATHIOPRINE. [Suspect]
     Active Substance: AZATHIOPRINE
     Indication: COLITIS ULCERATIVE
     Route: 048
     Dates: start: 20140224, end: 20180306
  2. PENTASA [Concomitant]
     Active Substance: MESALAMINE
     Route: 048
     Dates: start: 20110926, end: 20170627
  3. PENTASA [Concomitant]
     Active Substance: MESALAMINE
     Route: 054
     Dates: start: 20141120, end: 20150611
  4. CLOPIDOGREL [Concomitant]
     Active Substance: CLOPIDOGREL BISULFATE
     Indication: MYOCARDIAL ISCHAEMIA
     Route: 048
     Dates: start: 201703, end: 20180326
  5. OMEPRAZOLE. [Concomitant]
     Active Substance: OMEPRAZOLE
     Indication: GASTRIC PH DECREASED
     Route: 048
     Dates: start: 20180703
  6. HUMIRA [Suspect]
     Active Substance: ADALIMUMAB
     Indication: COLITIS ULCERATIVE
     Route: 058
     Dates: start: 20140224, end: 20180411
  7. PENTASA [Concomitant]
     Active Substance: MESALAMINE
     Route: 048
     Dates: start: 20170628
  8. PENTASA [Concomitant]
     Active Substance: MESALAMINE
     Indication: COLITIS ULCERATIVE
     Dosage: HIGHEST MAINTAINED DOSE
     Route: 054
     Dates: start: 20110905, end: 20111024
  9. FEROGRADUMET [Concomitant]
     Indication: IRON DEFICIENCY
     Route: 048
     Dates: start: 20180627, end: 20180726
  10. PENTASA [Concomitant]
     Active Substance: MESALAMINE
     Dosage: HIGHEST MAINTAINED DOSE
     Route: 048
     Dates: start: 20110804, end: 20110926
  11. CLOPIDOGREL [Concomitant]
     Active Substance: CLOPIDOGREL BISULFATE
     Route: 048
     Dates: start: 20180704
  12. FEROGRADUMET [Concomitant]
     Indication: ANAEMIA

REACTIONS (5)
  - Pouchitis [Recovered/Resolved]
  - Urosepsis [Recovered/Resolved]
  - Urosepsis [Recovered/Resolved]
  - Urinary tract obstruction [Recovered/Resolved]
  - Urinary tract obstruction [Recovered/Resolved]

NARRATIVE: CASE EVENT DATE: 20180808
